FAERS Safety Report 10504045 (Version 1)
Quarter: 2014Q4

REPORT INFORMATION
  Report Type: Spontaneous
  Country: US (occurrence: None)
  Receive Date: 20141007
  Receipt Date: 20141007
  Transmission Date: 20150528
  Serious: Yes (Hospitalization)
  Sender: FDA-Public Use
  Company Number: None

PATIENT
  Age: 62 Year
  Sex: Male

DRUGS (7)
  1. OXYCODONE [Concomitant]
     Active Substance: OXYCODONE
  2. DOCUSATE [Concomitant]
     Active Substance: DOCUSATE
  3. NORCO [Concomitant]
     Active Substance: ACETAMINOPHEN\HYDROCODONE BITARTRATE
  4. MORPHINE [Concomitant]
     Active Substance: MORPHINE
  5. FAMOTIDINE. [Concomitant]
     Active Substance: FAMOTIDINE
  6. XARELTO [Suspect]
     Active Substance: RIVAROXABAN
     Indication: PULMONARY EMBOLISM
     Dosage: 1 PILL BID ORAL
     Route: 048
     Dates: start: 20140324, end: 20140403
  7. PERCOCET [Concomitant]
     Active Substance: ACETAMINOPHEN\OXYCODONE HYDROCHLORIDE

REACTIONS (4)
  - Hyperhidrosis [None]
  - Nausea [None]
  - Hepatitis [None]
  - Dehydration [None]

NARRATIVE: CASE EVENT DATE: 20140403
